FAERS Safety Report 20769167 (Version 1)
Quarter: 2022Q2

REPORT INFORMATION
  Report Type: Spontaneous
  Country: US (occurrence: None)
  Receive Date: 20220429
  Receipt Date: 20220429
  Transmission Date: 20220721
  Serious: Yes (Hospitalization)
  Sender: FDA-Public Use
  Company Number: None

PATIENT
  Sex: Male
  Weight: 85.7 kg

DRUGS (4)
  1. METHOTREXATE [Suspect]
     Active Substance: METHOTREXATE
     Dates: end: 20220421
  2. MERCAPTOPURINE [Suspect]
     Active Substance: MERCAPTOPURINE
     Dates: end: 20220421
  3. DEXAMETHASONE [Suspect]
     Active Substance: DEXAMETHASONE
     Dates: end: 20220411
  4. VINCRISTINE SULFATE [Suspect]
     Active Substance: VINCRISTINE SULFATE
     Dates: end: 20220407

REACTIONS (10)
  - Headache [None]
  - Pyrexia [None]
  - Chills [None]
  - Diarrhoea [None]
  - Cholecystitis [None]
  - Hepatic cirrhosis [None]
  - Gallbladder enlargement [None]
  - Clostridium difficile infection [None]
  - Bilirubin conjugated increased [None]
  - Blood bilirubin increased [None]

NARRATIVE: CASE EVENT DATE: 20220422
